FAERS Safety Report 17821512 (Version 5)
Quarter: 2021Q2

REPORT INFORMATION
  Report Type: Report from Study
  Country: CA (occurrence: CA)
  Receive Date: 20200525
  Receipt Date: 20210629
  Transmission Date: 20210716
  Serious: Yes (Hospitalization, Other)
  Sender: FDA-Public Use
  Company Number: PHHY2018CA046242

PATIENT
  Age: 62 Year
  Sex: Female

DRUGS (25)
  1. LIQUIGEL [Concomitant]
     Indication: PRODUCT USED FOR UNKNOWN INDICATION
     Dosage: TID (ONE DROP EACH EYE)
     Route: 065
  2. XELODA [Concomitant]
     Active Substance: CAPECITABINE
     Indication: PRODUCT USED FOR UNKNOWN INDICATION
     Dosage: 2 DF, BID (STRENGTH: 150 MG)
     Route: 048
  3. MB 12 [Concomitant]
     Active Substance: METHYLCOBALAMIN
     Indication: PRODUCT USED FOR UNKNOWN INDICATION
     Dosage: 12000 UG, QD (ONCE A BREAKFAST)
     Route: 048
  4. TRAMADOL. [Concomitant]
     Active Substance: TRAMADOL
     Indication: PRODUCT USED FOR UNKNOWN INDICATION
     Dosage: UNK
     Route: 065
  5. SANDOSTATIN [Suspect]
     Active Substance: OCTREOTIDE ACETATE
  6. PANTOPRAZOLE [Concomitant]
     Active Substance: PANTOPRAZOLE
     Indication: PRODUCT USED FOR UNKNOWN INDICATION
     Dosage: UNK UNK, QD (AT BREAKFAST)
     Route: 048
  7. SANDOSTATIN LAR DEPOT [Suspect]
     Active Substance: OCTREOTIDE ACETATE
     Indication: INSULINOMA
     Dosage: 50 MG, QMO (EVERY 4 WEEKS)
     Route: 030
     Dates: start: 20140627
  8. SANDOSTATIN LAR DEPOT [Suspect]
     Active Substance: OCTREOTIDE ACETATE
  9. ZOVIRAX [Concomitant]
     Active Substance: ACYCLOVIR
     Indication: INJURY
     Dosage: UNK, QD (4 TO 6 TIMES)
     Route: 065
  10. DIMENATE [Concomitant]
     Active Substance: DIMENHYDRINATE
     Indication: PRODUCT USED FOR UNKNOWN INDICATION
     Dosage: UNK
     Route: 065
  11. PRO?QUETIAPINE [Concomitant]
     Indication: PRODUCT USED FOR UNKNOWN INDICATION
     Dosage: UNK UNK, QD (2 TO 3 TABS/BEDTIME)
     Route: 048
  12. SANDOSTATIN [Suspect]
     Active Substance: OCTREOTIDE ACETATE
  13. CAL?500 [Concomitant]
     Indication: PRODUCT USED FOR UNKNOWN INDICATION
     Dosage: UNK UNK, QD (AT BREAKFAST)
     Route: 048
  14. SANDOSTATIN [Suspect]
     Active Substance: OCTREOTIDE ACETATE
     Indication: INSULINOMA
     Dosage: 150 UG, BID
     Route: 058
     Dates: end: 2014
  15. TEMODAL [Concomitant]
     Active Substance: TEMOZOLOMIDE
     Indication: PRODUCT USED FOR UNKNOWN INDICATION
     Dosage: UNK UNK, QD (STRENGTH: 100 MG)
     Route: 048
  16. DEX4 [Concomitant]
     Indication: PRODUCT USED FOR UNKNOWN INDICATION
     Dosage: UNK
     Route: 065
  17. JUBLIA [Concomitant]
     Active Substance: EFINACONAZOLE
     Indication: PRODUCT USED FOR UNKNOWN INDICATION
     Dosage: 10 %, QD
     Route: 065
  18. APO?LACTULOSE [Concomitant]
     Active Substance: LACTULOSE
     Indication: PRODUCT USED FOR UNKNOWN INDICATION
     Dosage: 30 ML, BID
     Route: 065
  19. TEMODAL [Concomitant]
     Active Substance: TEMOZOLOMIDE
     Dosage: UNK UNK, QD (STRENGTH: 20 MG)
     Route: 048
  20. ONDANSETRAN [Concomitant]
     Active Substance: ONDANSETRON HYDROCHLORIDE
     Indication: PRODUCT USED FOR UNKNOWN INDICATION
     Dosage: UNK UNK, QD
     Route: 048
  21. XELODA [Concomitant]
     Active Substance: CAPECITABINE
     Dosage: 2 DF, BID (STRENGTH: 500 MG)
     Route: 048
  22. SANDOSTATIN LAR DEPOT [Suspect]
     Active Substance: OCTREOTIDE ACETATE
  23. QUETIAPINE TEVA [Concomitant]
     Active Substance: QUETIAPINE
     Indication: PRODUCT USED FOR UNKNOWN INDICATION
     Dosage: UNK UNK, QD (ONCE AT BED TIME)
     Route: 048
  24. TEMODAL [Concomitant]
     Active Substance: TEMOZOLOMIDE
     Dosage: UNK UNK, QD (STRENGTH: 250 MG)
     Route: 048
  25. D?TABS [Concomitant]
     Active Substance: CHOLECALCIFEROL
     Indication: PRODUCT USED FOR UNKNOWN INDICATION
     Dosage: 10000 IU, QW (SUNDAY)
     Route: 048

REACTIONS (22)
  - Second primary malignancy [Unknown]
  - Rash pruritic [Unknown]
  - Acne [Unknown]
  - Erythema [Unknown]
  - Blood glucose decreased [Unknown]
  - Sputum discoloured [Unknown]
  - Breast mass [Unknown]
  - Pruritus [Unknown]
  - Pain [Unknown]
  - Nausea [Unknown]
  - Bronchitis [Unknown]
  - Nasal congestion [Unknown]
  - Fatigue [Unknown]
  - Pyrexia [Unknown]
  - Ear pain [Unknown]
  - Breast cancer [Unknown]
  - Pyrexia [Recovered/Resolved]
  - Cough [Unknown]
  - Heart rate increased [Unknown]
  - Gait inability [Recovered/Resolved]
  - Gait disturbance [Unknown]
  - Injection site pain [Unknown]

NARRATIVE: CASE EVENT DATE: 20190905
